FAERS Safety Report 6679320-6 (Version None)
Quarter: 2010Q2

REPORT INFORMATION
  Report Type: 
  Country: None (occurrence: None)
  Receive Date: 20100413
  Receipt Date: 20100405
  Transmission Date: 20101027
  Serious: Yes (Hospitalization)
  Sender: FDA-Public Use
  Company Number: JP-ELI_LILLY_AND_COMPANY-JP201004000389

PATIENT
  Age: 78 Year
  Sex: Female
  Weight: 46 kg

DRUGS (13)
  1. PEMETREXED [Suspect]
     Indication: LUNG ADENOCARCINOMA RECURRENT
     Dosage: 600 MG, OTHER
     Route: 042
     Dates: start: 20091016, end: 20091106
  2. FOLIC ACID [Concomitant]
     Dosage: 0.5 MG, DAILY (1/D)
     Route: 048
     Dates: start: 20090918, end: 20091210
  3. METHYCOBAL [Concomitant]
     Dosage: 1 MG, UNK
     Route: 030
     Dates: start: 20090918, end: 20090918
  4. AMLODIPINE [Concomitant]
     Route: 048
  5. MICARDIS [Concomitant]
     Route: 048
  6. CINAL [Concomitant]
     Route: 048
  7. NEUER [Concomitant]
     Route: 048
  8. HOKUNALIN [Concomitant]
     Route: 062
  9. LENDORMIN [Concomitant]
     Route: 048
  10. CODEINE SULFATE [Concomitant]
     Route: 048
  11. DUROTEP [Concomitant]
     Route: 062
  12. MAGMITT [Concomitant]
     Route: 048
  13. ALOSENN                            /00476901/ [Concomitant]
     Route: 048

REACTIONS (1)
  - GASTROINTESTINAL DISORDER [None]
